FAERS Safety Report 4736468-0 (Version None)
Quarter: 2005Q3

REPORT INFORMATION
  Report Type: 
  Country: None (occurrence: None)
  Receive Date: 20050802
  Receipt Date: 20050722
  Transmission Date: 20060218
  Serious: Yes (Death, Hospitalization)
  Sender: FDA-Public Use
  Company Number: GBWYE776127JUN05

PATIENT
  Sex: Male

DRUGS (2)
  1. RAPAMUNE [Suspect]
     Dosage: 8NG/ML
  2. MYCOPHENOLATE MOFETIL (MYCOPHENOLATE MOFETIL) [Concomitant]

REACTIONS (4)
  - C-REACTIVE PROTEIN INCREASED [None]
  - CARDIAC ARREST [None]
  - MALAISE [None]
  - SEPSIS [None]
